FAERS Safety Report 5260837-6 (Version None)
Quarter: 2007Q1

REPORT INFORMATION
  Report Type: 
  Country: None (occurrence: None)
  Receive Date: 20070309
  Receipt Date: 20070307
  Transmission Date: 20070707
  Serious: Yes (Death)
  Sender: FDA-Public Use
  Company Number: US-BRISTOL-MYERS SQUIBB COMPANY-13654124

PATIENT
  Age: 38 Year
  Sex: Female

DRUGS (9)
  1. GLUCOPHAGE [Suspect]
     Indication: DIABETES MELLITUS NON-INSULIN-DEPENDENT
     Route: 048
     Dates: start: 20030801, end: 20060601
  2. LISINOPRIL [Concomitant]
  3. GABAPENTIN [Concomitant]
  4. LISINOPRIL [Concomitant]
  5. SINGULAIR [Concomitant]
  6. ALBUTEROL [Concomitant]
  7. STRATTERA [Concomitant]
  8. ADVAIR DISKUS 100/50 [Concomitant]
  9. IBUPROFEN [Concomitant]

REACTIONS (1)
  - DEATH [None]
